FAERS Safety Report 17729004 (Version 2)
Quarter: 2020Q3

REPORT INFORMATION
  Report Type: Spontaneous
  Country: NL (occurrence: NL)
  Receive Date: 20200430
  Receipt Date: 20200725
  Transmission Date: 20201102
  Serious: Yes (Hospitalization, Other)
  Sender: FDA-Public Use
  Company Number: NL-MACLEODS PHARMACEUTICALS US LTD-MAC2015001554

PATIENT

DRUGS (2)
  1. TADALAFIL 20 MG TABLET [Suspect]
     Active Substance: TADALAFIL
     Dosage: UNK, HALF TABLET 24 HOUR BEFORE ADMISSION
     Route: 065
  2. TADALAFIL 20 MG TABLET [Suspect]
     Active Substance: TADALAFIL
     Indication: ERECTILE DYSFUNCTION
     Dosage: UNK, HALF TABLET
     Route: 065

REACTIONS (10)
  - Vomiting [Recovered/Resolved]
  - Fall [Recovered/Resolved]
  - Abdominal pain [Recovered/Resolved]
  - Sinus tachycardia [Recovered/Resolved]
  - Hyperhidrosis [Recovered/Resolved]
  - Chest pain [Recovered/Resolved]
  - Haemothorax [Recovered/Resolved]
  - Nausea [Recovered/Resolved]
  - Aortic dissection [Recovered/Resolved]
  - Self-medication [Recovered/Resolved]
